FAERS Safety Report 24369192 (Version 1)
Quarter: 2024Q3

REPORT INFORMATION
  Report Type: Report from Study
  Country: US (occurrence: US)
  Receive Date: 20240927
  Receipt Date: 20240927
  Transmission Date: 20241017
  Serious: No
  Sender: ROCHE
  Company Number: US-ROCHE-3446508

PATIENT
  Age: 72 Year
  Sex: Female
  Weight: 80.7 kg

DRUGS (24)
  1. LUCENTIS [Suspect]
     Active Substance: RANIBIZUMAB
     Indication: Type 2 diabetes mellitus
     Dosage: THE ANTICIPATED DATE OF TREATMENT FOR LUCENTIS WAS ON 27/NOV/2022.
     Route: 065
  2. LUCENTIS [Suspect]
     Active Substance: RANIBIZUMAB
     Indication: Diabetic retinopathy
  3. LUCENTIS [Suspect]
     Active Substance: RANIBIZUMAB
     Indication: Macular oedema
  4. TNKASE [Suspect]
     Active Substance: TENECTEPLASE
     Indication: Type 2 diabetes mellitus
     Route: 065
  5. TNKASE [Suspect]
     Active Substance: TENECTEPLASE
     Indication: Diabetic retinopathy
  6. TNKASE [Suspect]
     Active Substance: TENECTEPLASE
     Indication: Macular oedema
  7. ALBUTEROL [Concomitant]
     Active Substance: ALBUTEROL
  8. ETHAMBUTOL [Concomitant]
     Active Substance: ETHAMBUTOL HYDROCHLORIDE
  9. DUONEB [Concomitant]
     Active Substance: ALBUTEROL SULFATE\IPRATROPIUM BROMIDE
  10. BYSTOLIC [Concomitant]
     Active Substance: NEBIVOLOL HYDROCHLORIDE
  11. VITAMIN B6 [Concomitant]
     Active Substance: PYRIDOXINE HYDROCHLORIDE
  12. ARIMIDEX [Concomitant]
     Active Substance: ANASTROZOLE
     Route: 048
  13. LIPITOR [Concomitant]
     Active Substance: ATORVASTATIN CALCIUM
     Route: 048
  14. CALTRATE 600+D3 PLUS MINERALS [BORON;CALCIUM;COLECALCIFEROL;COPPER;MAG [Concomitant]
     Route: 048
  15. SYNTHROID [Concomitant]
     Active Substance: LEVOTHYROXINE SODIUM
     Dosage: 100 MCG
     Route: 048
  16. COZAAR [Concomitant]
     Active Substance: LOSARTAN POTASSIUM
     Route: 048
  17. SINGULAIR [Concomitant]
     Active Substance: MONTELUKAST SODIUM
     Route: 048
  18. VITAMINS [Concomitant]
     Active Substance: VITAMINS
  19. OMEGA 3 [Concomitant]
     Active Substance: CAPSAICIN
     Route: 048
  20. PALBOCICLIB [Concomitant]
     Active Substance: PALBOCICLIB
     Route: 048
  21. SAMBUCUS [Concomitant]
  22. KENALOG [Concomitant]
     Active Substance: TRIAMCINOLONE ACETONIDE
  23. TRULICITY [Concomitant]
     Active Substance: DULAGLUTIDE
  24. EFFEXOR XR [Concomitant]
     Active Substance: VENLAFAXINE HYDROCHLORIDE
     Route: 048

REACTIONS (10)
  - Muscular weakness [Unknown]
  - Facial paralysis [Unknown]
  - Aphasia [Unknown]
  - Gait disturbance [Unknown]
  - Red blood cell count decreased [Unknown]
  - Mean cell volume increased [Unknown]
  - Mean cell haemoglobin increased [Unknown]
  - Activated partial thromboplastin time prolonged [Unknown]
  - Blood glucose abnormal [Unknown]
  - Off label use [Unknown]
